FAERS Safety Report 16847720 (Version 1)
Quarter: 2019Q3

REPORT INFORMATION
  Report Type: Other
  Country: US (occurrence: US)
  Receive Date: 20190924
  Receipt Date: 20190924
  Transmission Date: 20191005
  Serious: No
  Sender: FDA-Public Use
  Company Number: US-ACORDA-ACO_160753_2019

PATIENT
  Age: 75 Year
  Sex: Female

DRUGS (3)
  1. ROPINIROLE. [Concomitant]
     Active Substance: ROPINIROLE
  2. CARBIDOPA LEVODOPA [Concomitant]
     Active Substance: CARBIDOPA\LEVODOPA
     Indication: PRODUCT USED FOR UNKNOWN INDICATION
  3. INBRIJA [Suspect]
     Active Substance: LEVODOPA
     Indication: PARKINSON^S DISEASE
     Dosage: 42 MILLIGRAM, PRN
     Dates: start: 20190811, end: 20190826

REACTIONS (2)
  - Drug ineffective [Unknown]
  - Dyskinesia [Unknown]

NARRATIVE: CASE EVENT DATE: 20190823
